FAERS Safety Report 8911464 (Version 1)
Quarter: 2012Q4

REPORT INFORMATION
  Report Type: 
  Country: US (occurrence: US)
  Receive Date: 20121116
  Receipt Date: 20121116
  Transmission Date: 20130627
  Serious: No
  Sender: FDA-Public Use
  Company Number: US-PFIZER INC-2012284197

PATIENT
  Age: 59 Year
  Sex: Female
  Weight: 67.12 kg

DRUGS (7)
  1. LIPITOR [Suspect]
     Indication: HIGH CHOLESTEROL
     Dosage: 10 mg, daily
     Dates: end: 201201
  2. LIPITOR [Suspect]
     Dosage: 10 mg, daily
     Dates: start: 201206
  3. ATORVASTATIN CALCIUM [Suspect]
     Indication: HIGH CHOLESTEROL
     Dosage: 10 mg, daily
     Dates: start: 201201, end: 201206
  4. VIGAMOX [Suspect]
     Indication: EYE DISORDER
     Dosage: UNK, 4x/day
     Route: 047
     Dates: start: 2012
  5. LOTEMAX [Suspect]
     Indication: EYE DISORDER
     Dosage: UNK, 2x/day
     Route: 047
     Dates: start: 2012
  6. BROMDAY [Suspect]
     Indication: EYE DISORDER
     Dosage: UNK, 2x/day
     Route: 047
     Dates: start: 2012
  7. AMLODIPINE BESILATE [Concomitant]
     Indication: BLOOD PRESSURE HIGH
     Dosage: 5 mg, daily

REACTIONS (4)
  - Foreign body sensation in eyes [Not Recovered/Not Resolved]
  - Lacrimation increased [Not Recovered/Not Resolved]
  - Middle insomnia [Not Recovered/Not Resolved]
  - Drug ineffective [Unknown]
